FAERS Safety Report 9779751 (Version 2)
Quarter: 2014Q1

REPORT INFORMATION
  Report Type: Spontaneous
  Country: US (occurrence: US)
  Receive Date: 20131223
  Receipt Date: 20140203
  Transmission Date: 20141002
  Serious: Yes (Congenital Anomaly)
  Sender: FDA-Public Use
  Company Number: US-GLAXOSMITHKLINE-A1054371A

PATIENT
  Sex: 0

DRUGS (2)
  1. LAMICTAL [Suspect]
     Route: 064
  2. LATUDA [Suspect]
     Route: 064

REACTIONS (2)
  - Anomaly of external ear congenital [Not Recovered/Not Resolved]
  - Foetal exposure during pregnancy [Unknown]
